FAERS Safety Report 14805358 (Version 1)
Quarter: 2018Q1

REPORT INFORMATION
  Report Type: Spontaneous
  Country: US (occurrence: US)
  Receive Date: 20180324
  Receipt Date: 20180324
  Transmission Date: 20180509
  Serious: Yes (Life-Threatening, Hospitalization, Disabling)
  Sender: FDA-Public Use
  Company Number: None

PATIENT
  Age: 14 Month
  Sex: Male
  Weight: 7.2 kg

DRUGS (1)
  1. CLOFARABINE. [Suspect]
     Active Substance: CLOFARABINE
     Indication: LANGERHANS^ CELL HISTIOCYTOSIS
     Dosage: ?          OTHER FREQUENCY:FIVE DAYS IN A ROW; INTRAVENOUS (NOT OTHERWISE SPECIFIED)?
     Route: 042
     Dates: start: 20170606, end: 20170804

REACTIONS (3)
  - Chronic hepatic failure [None]
  - Hepatic cirrhosis [None]
  - Drug-induced liver injury [None]

NARRATIVE: CASE EVENT DATE: 20170612
